FAERS Safety Report 14405904 (Version 1)
Quarter: 2018Q1

REPORT INFORMATION
  Report Type: Spontaneous
  Country: US (occurrence: US)
  Receive Date: 20180118
  Receipt Date: 20180118
  Transmission Date: 20180509
  Serious: Yes (Hospitalization, Other)
  Sender: FDA-Public Use
  Company Number: US-PFIZER INC-2018022233

PATIENT
  Age: 78 Year
  Sex: Male

DRUGS (8)
  1. REVATIO [Suspect]
     Active Substance: SILDENAFIL CITRATE
     Indication: CARDIAC DISCOMFORT
     Dosage: 20MG; THREE TIMES A DAY
  2. SPIRONOLACTONE. [Concomitant]
     Active Substance: SPIRONOLACTONE
     Dosage: 25 MG, UNK
  3. POTASSIUM [Concomitant]
     Active Substance: POTASSIUM
  4. FUROSEMIDE. [Concomitant]
     Active Substance: FUROSEMIDE
     Indication: FLUID RETENTION
     Dosage: 80MG ONCE A DAY
  5. SIMVASTATIN. [Concomitant]
     Active Substance: SIMVASTATIN
     Dosage: 80MG; ONE A NIGHT
  6. COREG [Concomitant]
     Active Substance: CARVEDILOL
     Dosage: 6.25MG; TWICE A DAY
  7. PRILOSEC [Concomitant]
     Active Substance: OMEPRAZOLE MAGNESIUM
     Indication: GASTROOESOPHAGEAL REFLUX DISEASE
     Dosage: 20MG; ONE BEFORE BREAKFAST AND ONE BEFORE SUPPER
  8. COUMADIN [Concomitant]
     Active Substance: WARFARIN SODIUM
     Dosage: 5 MG, ON MONDAY, TUESDAY, AND THURSDAY HE TAKES A WHOLE PILL, AND THE OTHER DAYS HE TAKES A HALF

REACTIONS (5)
  - Conjunctivitis [Unknown]
  - Pleural effusion [Unknown]
  - Pneumonia [Unknown]
  - Drug effect incomplete [Unknown]
  - Malaise [Unknown]
